FAERS Safety Report 9003548 (Version 1)
Quarter: 2013Q1

REPORT INFORMATION
  Report Type: Report from Study
  Country: NL (occurrence: NL)
  Receive Date: 20130108
  Receipt Date: 20130108
  Transmission Date: 20140127
  Serious: Yes (Hospitalization, Other)
  Sender: FDA-Public Use
  Company Number: NL-AMGEN-NLDCT2013000929

PATIENT
  Age: 17 Year
  Sex: Female
  Weight: 66.9 kg

DRUGS (3)
  1. ETANERCEPT [Suspect]
     Indication: JUVENILE IDIOPATHIC ARTHRITIS
     Dosage: 50 MG, QWK
     Dates: start: 20080304, end: 20101208
  2. DICLOFENAC [Concomitant]
     Indication: JUVENILE IDIOPATHIC ARTHRITIS
     Dosage: UNK
     Route: 048
     Dates: start: 20070809
  3. OMEPRAZOL                          /00661201/ [Concomitant]
     Dosage: UNK
     Route: 048
     Dates: start: 20070809

REACTIONS (1)
  - Colitis microscopic [Not Recovered/Not Resolved]
